FAERS Safety Report 11004664 (Version 1)
Quarter: 2015Q2

REPORT INFORMATION
  Report Type: Spontaneous
  Country: US (occurrence: US)
  Receive Date: 20150409
  Receipt Date: 20150409
  Transmission Date: 20150821
  Serious: No
  Sender: FDA-Public Use
  Company Number: US-009507513-1503USA011550

PATIENT
  Age: 3 Month
  Sex: Male

DRUGS (1)
  1. PROVENTIL [Suspect]
     Active Substance: ALBUTEROL
     Dosage: 1 PUFF EVERY 6 HOURS AS NEEDED, STRENGTH REPORTED AS: 90 MICROGRAM 1 STANDARD DOSE OF 6.7
     Route: 055
     Dates: start: 201503

REACTIONS (2)
  - Drug administered to patient of inappropriate age [Unknown]
  - Nasal congestion [Recovering/Resolving]

NARRATIVE: CASE EVENT DATE: 201503
